FAERS Safety Report 17878905 (Version 2)
Quarter: 2020Q2

REPORT INFORMATION
  Report Type: Spontaneous
  Country: PL (occurrence: PL)
  Receive Date: 20200610
  Receipt Date: 20200617
  Transmission Date: 20200714
  Serious: Yes (Other)
  Sender: FDA-Public Use
  Company Number: PL-TEVA-2020-PL-1246606

PATIENT
  Age: 22 Year
  Sex: Female

DRUGS (6)
  1. LACOSAMIDE. [Interacting]
     Active Substance: LACOSAMIDE
     Dosage: 500 MILLIGRAM DAILY;
     Route: 065
  2. LAMOTRIGINE. [Suspect]
     Active Substance: LAMOTRIGINE
     Indication: PARTIAL SEIZURES WITH SECONDARY GENERALISATION
     Dosage: 200 MILLIGRAM DAILY;
     Route: 065
  3. LACOSAMIDE. [Interacting]
     Active Substance: LACOSAMIDE
     Indication: PARTIAL SEIZURES WITH SECONDARY GENERALISATION
     Dosage: 300 MILLIGRAM DAILY;
     Route: 065
  4. LACOSAMIDE. [Interacting]
     Active Substance: LACOSAMIDE
     Indication: AUTOMATISM EPILEPTIC
     Dosage: 450 MILLIGRAM DAILY;
     Route: 065
  5. SERTRALINE [Concomitant]
     Active Substance: SERTRALINE HYDROCHLORIDE
     Indication: DEPRESSED MOOD
     Dosage: IN THE MORNING
  6. LAMOTRIGINE. [Interacting]
     Active Substance: LAMOTRIGINE
     Indication: AUTOMATISM EPILEPTIC
     Dosage: 300 MILLIGRAM DAILY;
     Route: 065

REACTIONS (5)
  - Dizziness [Unknown]
  - Off label use [Unknown]
  - Drug interaction [Unknown]
  - Neurotoxicity [Unknown]
  - Diplopia [Unknown]
